FAERS Safety Report 9719145 (Version 2)
Quarter: 2013Q4

REPORT INFORMATION
  Report Type: Report from Study
  Country: MW (occurrence: MW)
  Receive Date: 20131127
  Receipt Date: 20131203
  Transmission Date: 20140711
  Serious: Yes (Hospitalization)
  Sender: FDA-Public Use
  Company Number: MW-GILEAD-2013-0088593

PATIENT
  Age: 36 Year
  Sex: Male
  Weight: 60 kg

DRUGS (4)
  1. EFAVIRENZ/EMTRICITABINE/TENOFOVIR DISOPROXIL FUMARATE [Suspect]
     Indication: HIV INFECTION
     Dosage: 1 DF, QD
     Route: 048
     Dates: start: 20121024
  2. ETOPOSIDE [Suspect]
     Indication: HIV INFECTION
     Dosage: 100 MG, QD
     Route: 048
     Dates: start: 20121025
  3. ETOPOSIDE [Suspect]
     Indication: KAPOSI^S SARCOMA
  4. INDOMETHACIN                       /00003801/ [Concomitant]
     Dosage: UNK

REACTIONS (1)
  - Anaemia [Recovered/Resolved]
